FAERS Safety Report 7450812-5 (Version None)
Quarter: 2011Q2

REPORT INFORMATION
  Report Type: 
  Country: None (occurrence: None)
  Receive Date: 20110429
  Receipt Date: 20110429
  Transmission Date: 20111010
  Serious: Yes (Disabling)
  Sender: FDA-Public Use
  Company Number: None

PATIENT
  Sex: Female
  Weight: 65.7716 kg

DRUGS (1)
  1. OMEPRAZOLE [Suspect]
     Indication: GASTROOESOPHAGEAL REFLUX DISEASE
     Dosage: 1 TABLET AM 1 TABLET PM MOUTH; 3 TABLET PER DAY JUNE 25-2010
     Route: 048
     Dates: start: 20100209, end: 20100730

REACTIONS (6)
  - FEELING ABNORMAL [None]
  - PHARYNGEAL DISORDER [None]
  - MALAISE [None]
  - ASTHENIA [None]
  - DYSPNOEA [None]
  - PAIN [None]
